FAERS Safety Report 8265409-7 (Version None)
Quarter: 2012Q2

REPORT INFORMATION
  Report Type: 
  Country: None (occurrence: None)
  Receive Date: 20120406
  Receipt Date: 20120327
  Transmission Date: 20120825
  Serious: Yes (Hospitalization, Other)
  Sender: FDA-Public Use
  Company Number: JP-PFIZER INC-2012061628

PATIENT
  Age: 80 Year
  Sex: Female
  Weight: 45.6 kg

DRUGS (8)
  1. ASPARA-CA [Concomitant]
     Dosage: 400 MG, 2X/DAY
     Route: 048
     Dates: start: 20100306
  2. PURSENNID [Concomitant]
     Dosage: 12 MG, 1X/DAY
     Route: 048
     Dates: start: 20100306
  3. VALTREX [Concomitant]
     Indication: HERPES ZOSTER
     Dosage: 1000 MG, 3X/DAY
     Route: 048
     Dates: start: 20120224
  4. MUCOSTA [Concomitant]
     Dosage: 100 MG, 3X/DAY
     Route: 048
     Dates: start: 20100306
  5. LOXONIN [Concomitant]
     Indication: HERPES ZOSTER
     Dosage: 1 DF, 3X/DAY
     Route: 048
     Dates: start: 20120224
  6. MENEST [Concomitant]
     Dosage: 100 MG, 3X/DAY
     Route: 048
     Dates: start: 20100306
  7. LYRICA [Suspect]
     Indication: POST HERPETIC NEURALGIA
     Dosage: 75 MG, 2X/DAY
     Route: 048
     Dates: start: 20120229
  8. SEROQUEL [Concomitant]
     Dosage: 25 MG, 1X/DAY
     Route: 048
     Dates: start: 20100408

REACTIONS (3)
  - LOSS OF CONSCIOUSNESS [None]
  - OXYGEN SATURATION DECREASED [None]
  - BLOOD PRESSURE DECREASED [None]
